FAERS Safety Report 4421180-8 (Version None)
Quarter: 2004Q3

REPORT INFORMATION
  Report Type: 
  Country: None (occurrence: None)
  Receive Date: 20040708
  Receipt Date: 20031118
  Transmission Date: 20050211
  Serious: No
  Sender: FDA-Public Use
  Company Number: US057968

PATIENT
  Age: 81 Year
  Sex: Female

DRUGS (2)
  1. KINERET [Suspect]
     Indication: RHEUMATOID ARTHRITIS
     Dosage: 100 MG, DAILY, SC
     Route: 058
     Dates: start: 20020425, end: 20020822
  2. OXYGEN [Concomitant]

REACTIONS (1)
  - DRUG INEFFECTIVE [None]
